FAERS Safety Report 9491050 (Version 2)
Quarter: 2013Q3

REPORT INFORMATION
  Report Type: Report from Study
  Country: JP (occurrence: JP)
  Receive Date: 20130830
  Receipt Date: 20130830
  Transmission Date: 20140515
  Serious: Yes (Death, Other)
  Sender: FDA-Public Use
  Company Number: JP-009507513-2009SP000291

PATIENT
  Age: 37 Year
  Sex: Male
  Weight: 65 kg

DRUGS (7)
  1. TEMOZOLOMIDE [Suspect]
     Indication: ANAPLASTIC ASTROCYTOMA
     Dosage: 75 MG/M2, QD
     Route: 048
     Dates: start: 20070216, end: 20070326
  2. TEMOZOLOMIDE [Suspect]
     Dosage: 150 MG/M2, QD
     Route: 048
     Dates: start: 20101130, end: 20101204
  3. DEPAKENE [Concomitant]
     Dosage: FORMULATION: POR
     Route: 048
  4. GASTER (FAMOTIDINE) [Concomitant]
     Dosage: UNK
     Route: 048
     Dates: start: 20070202
  5. NASEA [Concomitant]
     Indication: PROPHYLAXIS
     Dosage: UNK
     Route: 048
     Dates: start: 20070216, end: 20070326
  6. PRIMPERAN [Concomitant]
     Route: 048
     Dates: start: 20070222, end: 20070228
  7. CEFZON [Concomitant]
     Route: 048
     Dates: start: 20070423, end: 20070426

REACTIONS (6)
  - Extradural abscess [Recovered/Resolved]
  - Disease progression [Fatal]
  - Inflammation [Recovered/Resolved]
  - White blood cell count increased [Recovered/Resolved]
  - C-reactive protein increased [Recovered/Resolved]
  - Nausea [Recovered/Resolved]
